FAERS Safety Report 15789995 (Version 2)
Quarter: 2019Q1

REPORT INFORMATION
  Report Type: Report from Study
  Country: CN (occurrence: CN)
  Receive Date: 20190104
  Receipt Date: 20190111
  Transmission Date: 20190417
  Serious: Yes (Other)
  Sender: FDA-Public Use
  Company Number: CN-PFIZER INC-2018531326

PATIENT
  Sex: Female

DRUGS (1)
  1. LIPITOR [Suspect]
     Active Substance: ATORVASTATIN CALCIUM
     Indication: SUBDURAL HAEMATOMA
     Dosage: 20 MG, 1X/DAY
     Route: 048

REACTIONS (2)
  - VIth nerve paralysis [Recovered/Resolved]
  - Diplopia [Unknown]
